FAERS Safety Report 8335109-3 (Version None)
Quarter: 2012Q2

REPORT INFORMATION
  Report Type: 
  Country: None (occurrence: None)
  Receive Date: 20120503
  Receipt Date: 20120430
  Transmission Date: 20120825
  Serious: Yes (Other)
  Sender: FDA-Public Use
  Company Number: PHHY2012US037029

PATIENT
  Age: 68 Year
  Sex: Male

DRUGS (1)
  1. BUFFERIN [Suspect]
     Indication: OSTEOARTHRITIS
     Dosage: UNK
     Route: 048
     Dates: start: 19940101, end: 20090601

REACTIONS (4)
  - LEUKOPENIA [None]
  - CONTUSION [None]
  - THROMBOCYTOPENIA [None]
  - SECRETION DISCHARGE [None]
